FAERS Safety Report 11630327 (Version 5)
Quarter: 2016Q1

REPORT INFORMATION
  Report Type: Report from Study
  Country: FR (occurrence: FR)
  Receive Date: 20151014
  Receipt Date: 20160113
  Transmission Date: 20160525
  Serious: Yes (Hospitalization, Other)
  Sender: FDA-Public Use
  Company Number: FR-BAYER-2015-349836

PATIENT
  Age: 49 Year
  Sex: Male
  Weight: 66 kg

DRUGS (25)
  1. OXALIPLATIN. [Suspect]
     Active Substance: OXALIPLATIN
     Indication: BILIARY CANCER METASTATIC
     Dosage: 114.60 MG, QD
     Route: 042
     Dates: end: 20151211
  2. REGORAFENIB [Suspect]
     Active Substance: REGORAFENIB
     Indication: BILIARY CANCER METASTATIC
     Dosage: LAST DOSE PRIOR TO SAE: 80 MG
     Route: 048
  3. REGORAFENIB [Suspect]
     Active Substance: REGORAFENIB
     Indication: BILIARY CANCER METASTATIC
     Dosage: LAST DOSE PRIOR TO SAE: 80 MG
     Route: 048
  4. REGORAFENIB [Suspect]
     Active Substance: REGORAFENIB
     Indication: BILIARY CANCER METASTATIC
     Dosage: LAST DOSE PRIOR TO SAE: 80MG
  5. GEMCITABINE [Suspect]
     Active Substance: GEMCITABINE\GEMCITABINE HYDROCHLORIDE
     Indication: BILIARY CANCER METASTATIC
     Dosage: 1998 MG
     Route: 042
     Dates: start: 20150528, end: 20150604
  6. ZOVIRAX [Concomitant]
     Active Substance: ACYCLOVIR
     Indication: SKIN INFECTION
     Dosage: UNK
     Route: 003
     Dates: start: 20150604, end: 20150612
  7. REGORAFENIB [Suspect]
     Active Substance: REGORAFENIB
     Indication: BILIARY CANCER METASTATIC
     Dosage: 80 MG, QD
     Route: 048
     Dates: start: 20150528, end: 20150610
  8. REGORAFENIB [Suspect]
     Active Substance: REGORAFENIB
     Indication: METASTASES TO BONE
     Dosage: UNK
     Route: 048
     Dates: start: 20150625
  9. REGORAFENIB [Suspect]
     Active Substance: REGORAFENIB
     Indication: METASTASES TO MUSCLE
     Dosage: LAST DOSE PRIOR TO SAE: 80 MG
     Route: 048
  10. DOLIPRANE [Concomitant]
     Active Substance: ACETAMINOPHEN
     Indication: BACK PAIN
  11. NEULASTA [Concomitant]
     Active Substance: PEGFILGRASTIM
     Indication: NEUTROPENIA
     Dosage: UNK
     Route: 058
  12. GEMCITABINE [Suspect]
     Active Substance: GEMCITABINE\GEMCITABINE HYDROCHLORIDE
     Indication: BILIARY CANCER METASTATIC
     Dosage: LAST DOSE PRIOR TO SAE: 1568 MG
     Route: 042
     Dates: end: 20151112
  13. DEXERYL [GLYCEROL,PARAFFIN, LIQUID,WHITE SOFT PARAFFIN] [Concomitant]
     Indication: DRY SKIN PROPHYLAXIS
     Dosage: UNK
  14. MOVICOL [Concomitant]
     Active Substance: POLYETHYLENE GLYCOL 3350\POTASSIUM CHLORIDE\SODIUM BICARBONATE\SODIUM CHLORIDE
     Indication: CONSTIPATION
     Dosage: UNK
     Route: 048
     Dates: start: 20150609, end: 20150611
  15. REGORAFENIB [Suspect]
     Active Substance: REGORAFENIB
     Indication: METASTASES TO LIVER
     Dosage: UNK
     Route: 048
     Dates: end: 20150908
  16. GEMCITABINE [Suspect]
     Active Substance: GEMCITABINE\GEMCITABINE HYDROCHLORIDE
     Indication: BILIARY CANCER METASTATIC
     Dosage: 1528 MG, QD
     Route: 042
     Dates: end: 20151211
  17. OXALIPLATIN. [Suspect]
     Active Substance: OXALIPLATIN
     Indication: METASTASES TO MUSCLE
     Dosage: LAST DOSE PRIOR TO SAE: 115.8 MG
     Route: 042
     Dates: end: 20151022
  18. OXALIPLATIN. [Suspect]
     Active Substance: OXALIPLATIN
     Indication: BILIARY CANCER METASTATIC
     Dosage: LAST DOSE PRIOR TO SAE: 117.6 MG
     Route: 042
     Dates: end: 20151112
  19. GEMCITABINE [Suspect]
     Active Substance: GEMCITABINE\GEMCITABINE HYDROCHLORIDE
     Indication: METASTASES TO LIVER
     Dosage: LAST DOSE PRIOR TO SAE: 1600 MG
     Route: 042
     Dates: end: 20150930
  20. OXALIPLATIN. [Suspect]
     Active Substance: OXALIPLATIN
     Indication: METASTASES TO LIVER
     Dosage: LAST DOSE PRIOR TO SAE: 120 MG
     Route: 042
     Dates: end: 20150930
  21. DOLIPRANE [Concomitant]
     Active Substance: ACETAMINOPHEN
     Indication: ARTHRALGIA
     Dosage: UNK
     Route: 048
     Dates: start: 20150520, end: 20150612
  22. GEMCITABINE [Suspect]
     Active Substance: GEMCITABINE\GEMCITABINE HYDROCHLORIDE
     Indication: METASTASES TO BONE
     Dosage: UNK
     Route: 042
     Dates: end: 20150902
  23. GEMCITABINE [Suspect]
     Active Substance: GEMCITABINE\GEMCITABINE HYDROCHLORIDE
     Indication: METASTASES TO MUSCLE
     Dosage: LAST DOSE PRIOR TO SAE: 1544 MG
     Route: 042
     Dates: end: 20151022
  24. OXALIPLATIN. [Suspect]
     Active Substance: OXALIPLATIN
     Indication: BILIARY CANCER METASTATIC
     Dosage: 177.6 MG
     Route: 042
     Dates: start: 20150528, end: 20150723
  25. OXALIPLATIN. [Suspect]
     Active Substance: OXALIPLATIN
     Indication: METASTASES TO BONE
     Dosage: UNK
     Route: 042
     Dates: end: 20150902

REACTIONS (18)
  - Fatigue [Recovered/Resolved]
  - Anaemia [Not Recovered/Not Resolved]
  - Anaemia [Recovered/Resolved]
  - General physical health deterioration [Not Recovered/Not Resolved]
  - Nausea [Recovered/Resolved]
  - Anaemia [Not Recovered/Not Resolved]
  - General physical health deterioration [Recovered/Resolved]
  - Chest pain [Recovered/Resolved]
  - Anaemia [Not Recovered/Not Resolved]
  - Neck pain [Not Recovered/Not Resolved]
  - Neck pain [Not Recovered/Not Resolved]
  - Abdominal pain [Not Recovered/Not Resolved]
  - Anaemia [Not Recovered/Not Resolved]
  - Hypokalaemia [Not Recovered/Not Resolved]
  - Hypercalcaemia [Not Recovered/Not Resolved]
  - Rib fracture [Not Recovered/Not Resolved]
  - Anaemia [Not Recovered/Not Resolved]
  - Anaemia [Not Recovered/Not Resolved]

NARRATIVE: CASE EVENT DATE: 20150605
